FAERS Safety Report 7210151-4 (Version None)
Quarter: 2011Q1

REPORT INFORMATION
  Report Type: 
  Country: None (occurrence: None)
  Receive Date: 20110105
  Receipt Date: 20101227
  Transmission Date: 20110831
  Serious: Yes (Hospitalization, Other)
  Sender: FDA-Public Use
  Company Number: US-ELI_LILLY_AND_COMPANY-US201010004353

PATIENT
  Age: 83 Year
  Sex: Female
  Weight: 54.422 kg

DRUGS (5)
  1. FORTEO [Suspect]
     Dosage: 20 UG, DAILY (1/D)
  2. ATIVAN [Concomitant]
     Dosage: UNK, UNKNOWN
     Route: 065
  3. HYDROCODONE [Concomitant]
     Dosage: 10 MG, UNKNOWN
     Route: 065
  4. FORTEO [Suspect]
     Indication: OSTEOPOROSIS POSTMENOPAUSAL
     Dosage: 20 UG, DAILY (1/D)
     Dates: start: 20100901
  5. OXYCARDIN [Concomitant]
     Dosage: UNK, UNKNOWN
     Route: 065

REACTIONS (7)
  - CHILLS [None]
  - SPINAL FUSION SURGERY [None]
  - CONVULSION [None]
  - SYNCOPE [None]
  - WITHDRAWAL SYNDROME [None]
  - DIZZINESS [None]
  - TREMOR [None]
